FAERS Safety Report 6937388-3 (Version None)
Quarter: 2010Q3

REPORT INFORMATION
  Report Type: 
  Country: None (occurrence: None)
  Receive Date: 20100823
  Receipt Date: 20100813
  Transmission Date: 20110219
  Serious: Yes (Other)
  Sender: FDA-Public Use
  Company Number: US-AMGEN-QUU419755

PATIENT
  Sex: Male

DRUGS (3)
  1. NPLATE [Suspect]
     Indication: PRODUCT USED FOR UNKNOWN INDICATION
     Dates: start: 20100205, end: 20100225
  2. GEMCITABINE [Concomitant]
  3. TAXOTERE [Concomitant]

REACTIONS (4)
  - ACUTE MYELOID LEUKAEMIA [None]
  - BIOPSY BONE MARROW ABNORMAL [None]
  - DRUG INEFFECTIVE [None]
  - PANCYTOPENIA [None]
